FAERS Safety Report 15368574 (Version 4)
Quarter: 2020Q4

REPORT INFORMATION
  Report Type: Report from Study
  Country: JP (occurrence: JP)
  Receive Date: 20180911
  Receipt Date: 20201005
  Transmission Date: 20210113
  Serious: Yes (Death, Hospitalization, Other)
  Sender: FDA-Public Use
  Company Number: JP-AMGEN-JPNCT2017095867

PATIENT
  Age: 80 Year
  Sex: Male

DRUGS (43)
  1. DARBEPOETIN ALFA [Suspect]
     Active Substance: DARBEPOETIN ALFA
     Dosage: 60 MICROGRAM, Q4WK
     Route: 058
     Dates: start: 20150519, end: 20150811
  2. SPIRIVA [Concomitant]
     Active Substance: TIOTROPIUM BROMIDE MONOHYDRATE
     Indication: CHRONIC OBSTRUCTIVE PULMONARY DISEASE
     Dosage: UNK
     Route: 055
  3. FUROSEMIDE. [Concomitant]
     Active Substance: FUROSEMIDE
     Dosage: UNK
     Route: 048
  4. SOL-MELCORT [Concomitant]
     Active Substance: METHYLPREDNISOLONE SODIUM SUCCINATE
     Dosage: UNK
     Route: 065
     Dates: start: 20170306, end: 20170310
  5. LENDORMIN [Concomitant]
     Active Substance: BROTIZOLAM
     Indication: INSOMNIA
     Dosage: UNK UNK, AS NECESSARY
     Route: 048
  6. MEDROL [Concomitant]
     Active Substance: METHYLPREDNISOLONE
     Indication: PRURITUS
     Dosage: UNK
     Route: 048
  7. METHADERM [Concomitant]
     Active Substance: DEXAMETHASONE DIPROPIONATE
     Indication: PRURITUS
     Dosage: UNK
     Route: 061
     Dates: start: 20150519
  8. SULBACILLIN [Concomitant]
     Active Substance: AMPICILLIN SODIUM\SULBACTAM SODIUM
     Dosage: UNK
     Route: 065
     Dates: start: 20160606, end: 20160612
  9. LOXONIN [Concomitant]
     Active Substance: LOXOPROFEN SODIUM
     Indication: CAROTIDYNIA
     Dosage: UNK
     Route: 048
     Dates: start: 20160825
  10. HISINALC [Concomitant]
     Dosage: UNK
     Route: 065
     Dates: start: 20151206, end: 20151210
  11. DARBEPOETIN ALFA [Suspect]
     Active Substance: DARBEPOETIN ALFA
     Indication: MYELODYSPLASTIC SYNDROME
     Dosage: 30 MICROGRAM
     Route: 058
     Dates: start: 20150421, end: 20150421
  12. DARBEPOETIN ALFA [Suspect]
     Active Substance: DARBEPOETIN ALFA
     Dosage: 60 MICROGRAM, Q3WK
     Route: 058
     Dates: start: 20151110, end: 20160517
  13. DARBEPOETIN ALFA [Suspect]
     Active Substance: DARBEPOETIN ALFA
     Dosage: 120 MICROGRAM, Q4WK
     Route: 058
     Dates: start: 20161004, end: 20170221
  14. ALLELOCK [Concomitant]
     Active Substance: OLOPATADINE HYDROCHLORIDE
     Indication: PRURITUS
     Dosage: UNK
     Route: 048
  15. REMICUT [Concomitant]
     Indication: PRURITUS
     Dosage: UNK
     Route: 048
  16. SULBACILLIN [Concomitant]
     Active Substance: AMPICILLIN SODIUM\SULBACTAM SODIUM
     Dosage: UNK
     Route: 065
     Dates: start: 20170306, end: 20170312
  17. MORPHINE HYDROCHLORIDE [Concomitant]
     Active Substance: MORPHINE HYDROCHLORIDE
     Indication: CARDIAC FAILURE
     Dosage: UNK
     Route: 065
     Dates: start: 20160831, end: 20160905
  18. CEFOCEF [Concomitant]
     Active Substance: CEFOPERAZONE SODIUM\SULBACTAM SODIUM
     Dosage: UNK
     Route: 065
     Dates: start: 20160920, end: 20160929
  19. DARBEPOETIN ALFA [Suspect]
     Active Substance: DARBEPOETIN ALFA
     Dosage: 60 MICROGRAM, Q2WK
     Route: 058
     Dates: start: 20150901, end: 20151013
  20. DARBEPOETIN ALFA [Suspect]
     Active Substance: DARBEPOETIN ALFA
     Dosage: 120 MICROGRAM
     Route: 058
     Dates: start: 20170418
  21. ADOAIR [Concomitant]
     Active Substance: FLUTICASONE PROPIONATE\SALMETEROL XINAFOATE
     Indication: CHRONIC OBSTRUCTIVE PULMONARY DISEASE
     Dosage: UNK
     Dates: start: 20160616
  22. SULBACILLIN [Concomitant]
     Active Substance: AMPICILLIN SODIUM\SULBACTAM SODIUM
     Dosage: UNK
     Route: 065
     Dates: start: 20160831, end: 20160905
  23. HISINALC [Concomitant]
     Dosage: UNK
     Route: 065
     Dates: start: 20170306, end: 20170307
  24. PLAVIX [Concomitant]
     Active Substance: CLOPIDOGREL BISULFATE
     Indication: ANGINA PECTORIS
     Dosage: UNK
     Route: 048
  25. CILOSTAZOL. [Concomitant]
     Active Substance: CILOSTAZOL
     Indication: ANGINA PECTORIS
     Dosage: UNK
     Route: 048
  26. SOL-MELCORT [Concomitant]
     Active Substance: METHYLPREDNISOLONE SODIUM SUCCINATE
     Dosage: UNK
     Route: 065
     Dates: start: 20160831, end: 20160904
  27. VITAMIN B COMPLEX [Concomitant]
     Active Substance: CYANOCOBALAMIN\DEXPANTHENOL\NIACINAMIDE\PYRIDOXINE HYDROCHLORIDE\RIBOFLAVIN 5^-PHOSPHATE SODIUM\THIAMINE HYDROCHLORIDE\VITAMIN B COMPLEX
     Indication: CHOLECYSTITIS
     Dosage: UNK
     Route: 065
     Dates: start: 20160921, end: 20160925
  28. DARBEPOETIN ALFA [Suspect]
     Active Substance: DARBEPOETIN ALFA
     Dosage: 120 MICROGRAM
     Route: 058
     Dates: start: 20170317, end: 20170317
  29. XYZAL [Concomitant]
     Active Substance: LEVOCETIRIZINE DIHYDROCHLORIDE
     Indication: PRURITUS
     Dosage: UNK
     Route: 048
     Dates: start: 20150519, end: 20150907
  30. NITROPEN [Concomitant]
     Active Substance: NITROGLYCERIN
     Indication: ANGINA PECTORIS
     Dosage: UNK UNK, AS NECESSARY
     Route: 060
  31. MUCOSTA [Concomitant]
     Active Substance: REBAMIPIDE
     Dosage: UNK
     Route: 048
  32. HISINALC [Concomitant]
     Dosage: UNK
     Route: 065
     Dates: start: 20160920, end: 20160929
  33. FAMOTIDINE. [Concomitant]
     Active Substance: FAMOTIDINE
     Indication: CHOLECYSTITIS
     Dosage: UNK
     Route: 065
     Dates: start: 20160921, end: 20160925
  34. PRIMOBOLAN [Concomitant]
     Active Substance: METHENOLONE
     Indication: MYELODYSPLASTIC SYNDROME
     Dosage: 15 MG, UNK
     Route: 048
  35. HIRUDOID [Concomitant]
     Active Substance: GLYCOSAMINOGLYCANS
     Indication: PRURITUS
     Dosage: UNK
     Route: 061
     Dates: start: 20150519
  36. SODIUM RABEPRAZOLE [Concomitant]
     Active Substance: RABEPRAZOLE SODIUM
     Dosage: UNK
     Route: 048
  37. MYSER [Concomitant]
     Dosage: UNK
     Route: 061
  38. FUROSEMIDE. [Concomitant]
     Active Substance: FUROSEMIDE
     Indication: CARDIAC FAILURE
     Dosage: UNK
     Route: 048
     Dates: start: 20151211, end: 20151224
  39. SOL-MELCORT [Concomitant]
     Active Substance: METHYLPREDNISOLONE SODIUM SUCCINATE
     Dosage: UNK
     Route: 065
     Dates: start: 20160606, end: 20160610
  40. LASIX [Concomitant]
     Active Substance: FUROSEMIDE
     Dosage: UNK
     Route: 065
     Dates: start: 20160831
  41. DARBEPOETIN ALFA [Suspect]
     Active Substance: DARBEPOETIN ALFA
     Dosage: 60 MICROGRAM, Q4WK
     Route: 058
     Dates: start: 20160712, end: 20160906
  42. BROTIZOLAM [Concomitant]
     Active Substance: BROTIZOLAM
     Dosage: UNK
     Route: 048
     Dates: start: 20151210, end: 20151210
  43. MIRACLID [Concomitant]
     Active Substance: ULINASTATIN
     Indication: CHOLECYSTITIS
     Dosage: UNK
     Route: 065
     Dates: start: 20160921, end: 20160926

REACTIONS (12)
  - Carotidynia [Recovered/Resolved]
  - Death [Fatal]
  - Cardiac failure [Recovered/Resolved]
  - Cardiac failure [Recovered/Resolved]
  - Chronic obstructive pulmonary disease [Recovering/Resolving]
  - Renal impairment [Recovered/Resolved]
  - Cholecystitis [Recovered/Resolved]
  - Cardiac failure [Recovering/Resolving]
  - Chronic obstructive pulmonary disease [Recovered/Resolved]
  - Chronic obstructive pulmonary disease [Recovered/Resolved]
  - Hepatic function abnormal [Recovered/Resolved]
  - Chronic obstructive pulmonary disease [Recovered/Resolved]

NARRATIVE: CASE EVENT DATE: 20151206
